FAERS Safety Report 7949018-2 (Version None)
Quarter: 2011Q4

REPORT INFORMATION
  Report Type: 
  Country: None (occurrence: None)
  Receive Date: 20111130
  Receipt Date: 20111118
  Transmission Date: 20120403
  Serious: Yes (Other)
  Sender: FDA-Public Use
  Company Number: US-ELI_LILLY_AND_COMPANY-US201111007493

PATIENT
  Sex: Female

DRUGS (3)
  1. COZAAR [Concomitant]
     Dosage: 100 MG, UNK
  2. FORTEO [Suspect]
     Indication: OSTEOPOROSIS
     Dosage: 20 UG, QD
     Dates: start: 20110421, end: 20111101
  3. SULAR [Concomitant]
     Indication: BLOOD PRESSURE
     Dosage: 25.5 MG, UNK

REACTIONS (4)
  - BLOOD CALCIUM INCREASED [None]
  - ANAEMIA [None]
  - NEOPLASM MALIGNANT [None]
  - IRON DEFICIENCY [None]
